FAERS Safety Report 9053982 (Version 2)
Quarter: 2013Q1

REPORT INFORMATION
  Report Type: Spontaneous
  Country: GB (occurrence: GB)
  Receive Date: 20130208
  Receipt Date: 20130318
  Transmission Date: 20140127
  Serious: No
  Sender: FDA-Public Use
  Company Number: PHFR2013GB001073

PATIENT
  Age: 31 None
  Sex: Male

DRUGS (2)
  1. CLOZARIL [Suspect]
     Indication: SCHIZOPHRENIA
     Dosage: 300 MG, DAILY
     Route: 048
     Dates: start: 20121130
  2. FLUOXETINE [Concomitant]
     Dosage: 40 MG, DAILY
     Route: 048

REACTIONS (3)
  - Dehydration [Unknown]
  - Vomiting [Recovered/Resolved]
  - Constipation [Recovered/Resolved]
